FAERS Safety Report 9934815 (Version 2)
Quarter: 2014Q1

REPORT INFORMATION
  Report Type: Spontaneous
  Country: GB (occurrence: GB)
  Receive Date: 20140228
  Receipt Date: 20140306
  Transmission Date: 20141002
  Serious: Yes (Other)
  Sender: FDA-Public Use
  Company Number: GB-GLAXOSMITHKLINE-B0972172A

PATIENT
  Age: 51 Year
  Sex: Female

DRUGS (7)
  1. PAZOPANIB [Suspect]
     Indication: SARCOMA
     Dosage: 800MG PER DAY
     Route: 065
  2. DOXORUBICIN [Concomitant]
  3. IFOSFAMIDE [Concomitant]
  4. GEMFIBROZIL [Concomitant]
     Dates: start: 201211
  5. DOCETAXEL [Concomitant]
     Dates: start: 201211
  6. NITROFURANTOIN [Concomitant]
  7. RAMIPRIL [Concomitant]

REACTIONS (10)
  - Vesical fistula [Unknown]
  - Urostomy [Unknown]
  - Lung disorder [Unknown]
  - Blood pressure increased [Unknown]
  - Fatigue [Unknown]
  - Diarrhoea [Unknown]
  - Alanine aminotransferase increased [Unknown]
  - Skin hypopigmentation [Unknown]
  - Hair colour changes [Unknown]
  - Hypertension [Unknown]
